FAERS Safety Report 24997297 (Version 1)
Quarter: 2025Q1

REPORT INFORMATION
  Report Type: Report from Study
  Country: IT (occurrence: IT)
  Receive Date: 20250221
  Receipt Date: 20250221
  Transmission Date: 20250409
  Serious: No
  Sender: SANDOZ
  Company Number: IT-SANDOZ-SDZ2025IT010769

PATIENT
  Age: 9 Year
  Sex: Male
  Weight: 41 kg

DRUGS (1)
  1. OMNITROPE [Suspect]
     Active Substance: SOMATROPIN
     Indication: Growth hormone deficiency
     Dosage: 1.2 MG, QD (LIQUID)
     Route: 058

REACTIONS (3)
  - Therapy cessation [Unknown]
  - Product dose omission issue [Unknown]
  - Device mechanical issue [Unknown]

NARRATIVE: CASE EVENT DATE: 20250216
